FAERS Safety Report 23141245 (Version 4)
Quarter: 2024Q3

REPORT INFORMATION
  Report Type: Report from Study
  Country: US (occurrence: US)
  Receive Date: 20231103
  Receipt Date: 20240723
  Transmission Date: 20241017
  Serious: Yes (Hospitalization)
  Sender: ACADIA PHARMACEUTICALS
  Company Number: US-ACADIA PHARMACEUTICALS INC.-ACA-2023-PIM-004646

PATIENT
  Age: 73 Year
  Sex: Female

DRUGS (1)
  1. NUPLAZID [Suspect]
     Active Substance: PIMAVANSERIN TARTRATE
     Indication: Parkinson^s disease
     Dosage: 34 MILLIGRAM, QD
     Route: 048
     Dates: start: 202205

REACTIONS (9)
  - Physiotherapy [Unknown]
  - Occupational therapy [Unknown]
  - Mobility decreased [Not Recovered/Not Resolved]
  - Decubitus ulcer [Not Recovered/Not Resolved]
  - Urinary tract infection [Recovered/Resolved]
  - Blister [Recovered/Resolved]
  - Skin ulcer [Recovered/Resolved]
  - Dysphonia [Unknown]
  - Hallucination [Unknown]

NARRATIVE: CASE EVENT DATE: 20240504
